FAERS Safety Report 19472235 (Version 1)
Quarter: 2021Q2

REPORT INFORMATION
  Report Type: Spontaneous
  Country: GB (occurrence: GB)
  Receive Date: 20210629
  Receipt Date: 20210629
  Transmission Date: 20210717
  Serious: Yes (Other)
  Sender: FDA-Public Use
  Company Number: GB-TEVA-2021-GB-1926533

PATIENT
  Age: 49 Year
  Sex: Female
  Weight: 70 kg

DRUGS (7)
  1. HYDROXYCHLOROQUINE SULFATE. [Concomitant]
     Active Substance: HYDROXYCHLOROQUINE SULFATE
     Dosage: 400 MILLIGRAM DAILY; 200MG
     Dates: start: 20210322
  2. FOLIC ACID. [Concomitant]
     Active Substance: FOLIC ACID
     Dosage: 5MG 6/7 PER WEEK
     Dates: start: 20210322
  3. PREDNISOLONE. [Concomitant]
     Active Substance: PREDNISOLONE
     Dosage: 6 DOSAGE FORMS DAILY;
     Dates: start: 20210609, end: 20210614
  4. CLINDAMYCIN. [Suspect]
     Active Substance: CLINDAMYCIN
     Dosage: 1800 MILLIGRAM DAILY; FOR 7 DAYS, 450 MG
     Route: 065
     Dates: start: 20210607
  5. METHOTREXATE. [Concomitant]
     Active Substance: METHOTREXATE
     Dosage: ON FRIDAYS, 15 MG
     Dates: start: 20210322
  6. DEPO?MEDRONE [Concomitant]
     Active Substance: METHYLPREDNISOLONE
     Dates: start: 20210322
  7. DOXYCYCLINE. [Concomitant]
     Active Substance: DOXYCYCLINE
     Dosage: 2 DOSAGE FORMS DAILY;
     Dates: start: 20210608, end: 20210615

REACTIONS (3)
  - Erythema [Unknown]
  - Rash erythematous [Recovering/Resolving]
  - Pruritus [Unknown]

NARRATIVE: CASE EVENT DATE: 20210615
